FAERS Safety Report 9144196 (Version 2)
Quarter: 2013Q1

REPORT INFORMATION
  Report Type: Spontaneous
  Country: US (occurrence: US)
  Receive Date: 20130306
  Receipt Date: 20130319
  Transmission Date: 20140127
  Serious: No
  Sender: FDA-Public Use
  Company Number: US-PFIZER INC-2013078932

PATIENT
  Sex: Male

DRUGS (3)
  1. LYRICA [Suspect]
     Indication: NEUROPATHY PERIPHERAL
     Dosage: 50 MG, 3X/DAY
  2. LYRICA [Suspect]
     Dosage: 75 MG, 3X/DAY
  3. LYRICA [Suspect]
     Dosage: UNK

REACTIONS (1)
  - Drug ineffective [Unknown]
